FAERS Safety Report 9146208 (Version 1)
Quarter: 2013Q1

REPORT INFORMATION
  Report Type: Spontaneous
  Country: US (occurrence: None)
  Receive Date: 20130227
  Receipt Date: 20130227
  Transmission Date: 20140127
  Serious: Yes (Other)
  Sender: FDA-Public Use
  Company Number: None

PATIENT
  Sex: Female

DRUGS (1)
  1. AVONEX [Suspect]

REACTIONS (5)
  - Progressive multifocal leukoencephalopathy [None]
  - Antibody test positive [None]
  - Injection site reaction [None]
  - Sensory disturbance [None]
  - Chills [None]
